APPROVED DRUG PRODUCT: HYDROCODONE BITARTRATE AND IBUPROFEN
Active Ingredient: HYDROCODONE BITARTRATE; IBUPROFEN
Strength: 7.5MG;200MG
Dosage Form/Route: TABLET;ORAL
Application: A091633 | Product #003
Applicant: SUN PHARMACEUTICAL INDUSTRIES INC
Approved: May 28, 2013 | RLD: No | RS: No | Type: DISCN